FAERS Safety Report 8298877-5 (Version None)
Quarter: 2012Q2

REPORT INFORMATION
  Report Type: 
  Country: None (occurrence: None)
  Receive Date: 20120419
  Receipt Date: 20120411
  Transmission Date: 20120825
  Serious: Yes (Other)
  Sender: FDA-Public Use
  Company Number: US-BAYER-2012-028668

PATIENT
  Age: 33 Year
  Sex: Female
  Weight: 54 kg

DRUGS (2)
  1. EFFEXOR [Concomitant]
     Indication: ANXIETY
     Dosage: UNK
     Route: 048
     Dates: start: 20110511, end: 20111015
  2. YAZ [Suspect]
     Dosage: UNK
     Route: 048
     Dates: start: 20110511, end: 20111031

REACTIONS (12)
  - SUBCLAVIAN VEIN THROMBOSIS [None]
  - HYPOAESTHESIA [None]
  - PAIN IN EXTREMITY [None]
  - PAIN [None]
  - SKIN DISCOLOURATION [None]
  - SENSATION OF HEAVINESS [None]
  - OEDEMA PERIPHERAL [None]
  - AXILLARY VEIN THROMBOSIS [None]
  - COLLATERAL CIRCULATION [None]
  - GENERAL PHYSICAL HEALTH DETERIORATION [None]
  - EMOTIONAL DISTRESS [None]
  - ANXIETY [None]
